FAERS Safety Report 20214435 (Version 1)
Quarter: 2021Q4

REPORT INFORMATION
  Report Type: Report from Study
  Country: DE (occurrence: DE)
  Receive Date: 20211221
  Receipt Date: 20211221
  Transmission Date: 20220303
  Serious: Yes (Death, Life-Threatening, Hospitalization)
  Sender: FDA-Public Use
  Company Number: DE-JNJFOC-20211135129

PATIENT
  Age: 60 Year
  Sex: Male
  Weight: 54 kg

DRUGS (1)
  1. DARATUMUMAB [Suspect]
     Active Substance: DARATUMUMAB
     Indication: Plasma cell myeloma
     Dosage: MEDICATION KIT NUMBER 103090, 104625
     Route: 058
     Dates: start: 20210921

REACTIONS (3)
  - Pneumonia [Fatal]
  - Neutropenic sepsis [Fatal]
  - Otitis media [Fatal]

NARRATIVE: CASE EVENT DATE: 20211114
